FAERS Safety Report 7018907-8 (Version None)
Quarter: 2010Q3

REPORT INFORMATION
  Report Type: 
  Country: None (occurrence: None)
  Receive Date: 20100928
  Receipt Date: 20100924
  Transmission Date: 20110219
  Serious: Yes (Hospitalization)
  Sender: FDA-Public Use
  Company Number: US-GILEAD-2010-0032130

PATIENT
  Age: 70 Year
  Sex: Male
  Weight: 71.278 kg

DRUGS (21)
  1. LETAIRIS [Suspect]
     Indication: PULMONARY ARTERIAL HYPERTENSION
     Route: 048
     Dates: start: 20090423
  2. ADCIRCA [Concomitant]
  3. METOLAZONE [Concomitant]
  4. CILOSTAZOL [Concomitant]
  5. TRAMADOL [Concomitant]
  6. ASPIRIN [Concomitant]
  7. LASIX [Concomitant]
  8. SPIRONOLACTONE [Concomitant]
  9. PROTONIX [Concomitant]
  10. TYLENOL [Concomitant]
  11. MELOXICAM [Concomitant]
  12. DIOVAN [Concomitant]
  13. LIDODERM [Concomitant]
  14. PLAVIX [Concomitant]
  15. IRON [Concomitant]
  16. WELCHOL [Concomitant]
  17. MULTI-VITAMIN [Concomitant]
  18. STOOL SOFTENER [Concomitant]
  19. QUININE SULFATE [Concomitant]
  20. ASCORBIC ACID [Concomitant]
  21. VITAMIN E [Concomitant]

REACTIONS (1)
  - COLLAPSE OF LUNG [None]
